FAERS Safety Report 5100525-X (Version None)
Quarter: 2006Q3

REPORT INFORMATION
  Report Type: 
  Country: None (occurrence: None)
  Receive Date: 20060909
  Receipt Date: 20060829
  Transmission Date: 20061208
  Serious: Yes (Hospitalization)
  Sender: FDA-Public Use
  Company Number: FR-ABBOTT-06P-056-0342582-00

PATIENT
  Sex: Female
  Weight: 68 kg

DRUGS (4)
  1. HUMIRA [Suspect]
     Indication: DRUG USE FOR UNKNOWN INDICATION
     Route: 058
     Dates: start: 20060401
  2. HUMIRA [Suspect]
     Route: 050
     Dates: start: 20060428, end: 20060615
  3. HUMIRA [Suspect]
     Route: 050
     Dates: start: 20060615
  4. HYDROCORTISONE [Concomitant]
     Indication: DRUG USE FOR UNKNOWN INDICATION
     Route: 048

REACTIONS (6)
  - ANAEMIA MACROCYTIC [None]
  - EYE PAIN [None]
  - HERPES ZOSTER DISSEMINATED [None]
  - KERATITIS HERPETIC [None]
  - ODYNOPHAGIA [None]
  - RASH [None]
